FAERS Safety Report 7064462-6 (Version None)
Quarter: 2010Q4

REPORT INFORMATION
  Report Type: 
  Country: None (occurrence: None)
  Receive Date: 20101027
  Receipt Date: 20101014
  Transmission Date: 20110411
  Serious: Yes (Other)
  Sender: FDA-Public Use
  Company Number: US-PFIZER INC-2010103379

PATIENT
  Sex: Female
  Weight: 90.703 kg

DRUGS (6)
  1. GEODON [Suspect]
     Indication: MAJOR DEPRESSION
     Dosage: 80 MG, 1X/DAY
     Route: 048
     Dates: start: 20090801
  2. GEODON [Suspect]
     Dosage: 20 MG/DAY
  3. WELLBUTRIN XL [Concomitant]
     Dosage: 450 MG/DAY
  4. KLONOPIN [Concomitant]
     Indication: INSOMNIA
     Dosage: 1MG - ONE TO THREE AT BEDTIME, AS NEEDED
  5. ELAVIL [Concomitant]
     Dosage: 25 MG, 1X/DAY
  6. CYMBALTA [Concomitant]
     Dosage: 120 MG, 1X/DAY

REACTIONS (2)
  - PARKINSONISM [None]
  - TARDIVE DYSKINESIA [None]
